FAERS Safety Report 6521100-6 (Version None)
Quarter: 2009Q4

REPORT INFORMATION
  Report Type: 
  Country: None (occurrence: None)
  Receive Date: 20091222
  Receipt Date: 20091209
  Transmission Date: 20100525
  Serious: Yes (Hospitalization)
  Sender: FDA-Public Use
  Company Number: 2009SP003308

PATIENT
  Age: 73 Year
  Sex: Male

DRUGS (15)
  1. XOPENEX [Suspect]
     Indication: CHRONIC OBSTRUCTIVE PULMONARY DISEASE
     Dosage: 0.63 MG/3ML;BID;INHALATION, 0.63 MG/3ML;BID;INHALATION 1.25 MG/3ML;INHALATION
     Dates: start: 20040101, end: 20091101
  2. XOPENEX [Suspect]
     Indication: CHRONIC OBSTRUCTIVE PULMONARY DISEASE
     Dosage: 0.63 MG/3ML;BID;INHALATION, 0.63 MG/3ML;BID;INHALATION 1.25 MG/3ML;INHALATION
     Dates: start: 20091101, end: 20091209
  3. COUMADIN [Concomitant]
  4. HYTRIN [Concomitant]
  5. ALBUTEROL [Concomitant]
  6. XANAX [Concomitant]
  7. CRESTOR [Concomitant]
  8. DILTIAZEM [Concomitant]
  9. FLOVENT [Concomitant]
  10. IPRATROPIUM [Concomitant]
  11. POTASSIUM CHLORIDE [Concomitant]
  12. OXYGEN [Concomitant]
  13. AEROBID [Concomitant]
  14. ATROVENT [Concomitant]
  15. FLOMAX [Concomitant]

REACTIONS (27)
  - ACUTE CORONARY SYNDROME [None]
  - ARTERIAL STENOSIS [None]
  - ATRIAL FIBRILLATION [None]
  - BLOOD GLUCOSE INCREASED [None]
  - CARDIAC STRESS TEST ABNORMAL [None]
  - CAROTID ARTERY STENOSIS [None]
  - CHRONIC OBSTRUCTIVE PULMONARY DISEASE [None]
  - CONDITION AGGRAVATED [None]
  - CORONARY ARTERY OCCLUSION [None]
  - DEVICE OCCLUSION [None]
  - DRUG HYPERSENSITIVITY [None]
  - EJECTION FRACTION DECREASED [None]
  - ELECTROCARDIOGRAM ST-T SEGMENT ABNORMAL [None]
  - EXPIRED DRUG ADMINISTERED [None]
  - FEELING ABNORMAL [None]
  - GLYCOSYLATED HAEMOGLOBIN INCREASED [None]
  - HYPOTENSION [None]
  - INTERNATIONAL NORMALISED RATIO INCREASED [None]
  - MEDICAL DEVICE COMPLICATION [None]
  - MYOCARDIAL ISCHAEMIA [None]
  - OEDEMA PERIPHERAL [None]
  - PNEUMONIA [None]
  - SCAN MYOCARDIAL PERFUSION ABNORMAL [None]
  - SYNCOPE [None]
  - THROAT TIGHTNESS [None]
  - TREMOR [None]
  - VENTRICULAR EXTRASYSTOLES [None]
